FAERS Safety Report 8237769-4 (Version None)
Quarter: 2012Q1

REPORT INFORMATION
  Report Type: 
  Country: None (occurrence: None)
  Receive Date: 20120309
  Receipt Date: 20110131
  Transmission Date: 20120608
  Serious: Yes (Other)
  Sender: FDA-Public Use
  Company Number: PHHY2010US74628

PATIENT
  Age: 35 Year
  Sex: Female

DRUGS (8)
  1. EXTAVIA [Suspect]
     Indication: MULTIPLE SCLEROSIS
     Dosage: 0.25 MG, QOD, SUBCUTANEOUS
     Route: 058
     Dates: start: 20100811
  2. VITAMIN B12 [Concomitant]
  3. ORTHO TRI-CYCLEN [Concomitant]
  4. VITAMIN D [Concomitant]
  5. FOLIC ACID [Concomitant]
  6. PROZAC [Concomitant]
  7. MOTRIN [Concomitant]
  8. RITALIN [Concomitant]

REACTIONS (4)
  - INJECTION SITE REACTION [None]
  - DEPRESSION [None]
  - VITAMIN B12 DECREASED [None]
  - FATIGUE [None]
